FAERS Safety Report 24565996 (Version 2)
Quarter: 2025Q3

REPORT INFORMATION
  Report Type: Spontaneous
  Country: JP (occurrence: JP)
  Receive Date: 20241030
  Receipt Date: 20250809
  Transmission Date: 20251020
  Serious: Yes (Other)
  Sender: ALEXION PHARMACEUTICALS
  Company Number: JP-ASTRAZENECA-240078094_013120_P_1

PATIENT
  Age: 72 Year
  Sex: Male

DRUGS (3)
  1. IMFINZI [Suspect]
     Active Substance: DURVALUMAB
     Indication: Hepatocellular carcinoma
     Dosage: 1500 MILLIGRAM, Q4W
     Dates: start: 20240617
  2. IMJUDO [Suspect]
     Active Substance: TREMELIMUMAB\TREMELIMUMAB-ACTL
     Indication: Hepatocellular carcinoma
     Dates: start: 20240617, end: 20240617
  3. UNSPECIFIED INGREDIENT [Suspect]
     Active Substance: UNSPECIFIED INGREDIENT
     Route: 065

REACTIONS (4)
  - Prerenal failure [Unknown]
  - Diarrhoea [Recovered/Resolved]
  - Rash [Recovering/Resolving]
  - Pyrexia [Recovered/Resolved]
